FAERS Safety Report 20126930 (Version 1)
Quarter: 2021Q4

REPORT INFORMATION
  Report Type: Spontaneous
  Country: US (occurrence: None)
  Receive Date: 20211129
  Receipt Date: 20211129
  Transmission Date: 20220303
  Serious: No
  Sender: FDA-Public Use
  Company Number: None

PATIENT
  Age: 76 Year
  Sex: Male
  Weight: 106 kg

DRUGS (1)
  1. VANCOMYCIN HYDROCHLORIDE [Suspect]
     Active Substance: VANCOMYCIN HYDROCHLORIDE
     Indication: Cellulitis
     Dosage: FREQUENCY : ONCE.;?
     Route: 042
     Dates: start: 20210819, end: 20210819

REACTIONS (3)
  - Anaphylactic reaction [None]
  - Blood pressure increased [None]
  - Tachypnoea [None]

NARRATIVE: CASE EVENT DATE: 20210819
